FAERS Safety Report 11312263 (Version 1)
Quarter: 2015Q3

REPORT INFORMATION
  Report Type: Spontaneous
  Country: BR (occurrence: BR)
  Receive Date: 20150727
  Receipt Date: 20150727
  Transmission Date: 20151125
  Serious: Yes (Other)
  Sender: FDA-Public Use
  Company Number: BR-PFIZER INC-2015248351

PATIENT
  Age: 69 Year
  Sex: Female
  Weight: 65 kg

DRUGS (4)
  1. LYRICA [Suspect]
     Active Substance: PREGABALIN
     Indication: SPINAL PAIN
     Dosage: 75 MG (ONE ^TABLET^), EVERY 12 HOURS
     Route: 048
     Dates: start: 2012, end: 2012
  2. HYDROCHLOROTHIAZIDE. [Concomitant]
     Active Substance: HYDROCHLOROTHIAZIDE
     Indication: HYPERTENSION
     Dosage: UNK, 1X/DAY (IN THE MORNING)
     Dates: start: 2005
  3. PURAN [Concomitant]
     Active Substance: LEVOTHYROXINE SODIUM
     Indication: THYROID DISORDER
     Dosage: UNK, 1X/DAY (ONE TABLET OF UNSPECIFIED DOSAGE BY THE MORNING, FASTING)
     Dates: start: 2005
  4. LOSARTAN. [Concomitant]
     Active Substance: LOSARTAN
     Indication: BLOOD PRESSURE ABNORMAL
     Dosage: 50 MG, 2X/DAY (ONE TABLET OF 50MG BY THE MORNING AND ONE TABLET OF 50MG AT NIGHT)
     Dates: start: 2005

REACTIONS (1)
  - Spinal column injury [Unknown]
